FAERS Safety Report 7082663-8 (Version None)
Quarter: 2010Q4

REPORT INFORMATION
  Report Type: 
  Country: None (occurrence: None)
  Receive Date: 20101001
  Receipt Date: 20100818
  Transmission Date: 20110411
  Serious: No
  Sender: FDA-Public Use
  Company Number: 1000015801

PATIENT
  Age: 82 Year
  Sex: Female

DRUGS (5)
  1. BYSTOLIC [Suspect]
     Indication: ARRHYTHMIA
     Dosage: 10 MG (10 MG, 1 IN 1 D), ORAL
     Route: 048
     Dates: start: 20100101
  2. DIOVAN HCT [Concomitant]
  3. EVISTA [Concomitant]
  4. OMEPRAZOLE [Concomitant]
  5. JUICE PLUS [Concomitant]

REACTIONS (2)
  - PURPLE GLOVE SYNDROME [None]
  - WEIGHT INCREASED [None]
